FAERS Safety Report 4285874-X (Version None)
Quarter: 2004Q1

REPORT INFORMATION
  Report Type: 
  Country: None (occurrence: None)
  Receive Date: 20040203
  Receipt Date: 20040122
  Transmission Date: 20041129
  Serious: Yes (Death)
  Sender: FDA-Public Use
  Company Number: 163-20785-04010077

PATIENT
  Age: 51 Year
  Sex: Male

DRUGS (1)
  1. THALOMID [Suspect]
     Indication: MALIGNANT MELANOMA
     Dosage: 400 MG, AT BEDTIME, ORAL
     Route: 048
     Dates: start: 20030301, end: 20030901

REACTIONS (7)
  - ASTHENIA [None]
  - HYPOALBUMINAEMIA [None]
  - MALIGNANT MELANOMA [None]
  - MALIGNANT NEOPLASM PROGRESSION [None]
  - METASTASES TO LIVER [None]
  - PULMONARY OEDEMA [None]
  - SOMNOLENCE [None]
